FAERS Safety Report 8731577 (Version 11)
Quarter: 2013Q2

REPORT INFORMATION
  Report Type: Spontaneous
  Country: GB (occurrence: GB)
  Receive Date: 20120820
  Receipt Date: 20130621
  Transmission Date: 20140414
  Serious: Yes (Hospitalization, Other)
  Sender: FDA-Public Use
  Company Number: GB-JNJFOC-20120709119

PATIENT
  Age: 28 Year
  Sex: Male

DRUGS (4)
  1. RISPERDAL CONSTA [Suspect]
     Indication: PSYCHOTIC DISORDER
     Route: 030
     Dates: start: 20120508, end: 20120711
  2. RISPERDAL CONSTA [Suspect]
     Indication: PSYCHOTIC DISORDER
     Route: 030
  3. RISPERDAL CONSTA [Suspect]
     Indication: PSYCHOTIC DISORDER
     Route: 030
     Dates: start: 201204
  4. DIAZEPAM [Concomitant]
     Indication: ANXIETY
     Route: 048
     Dates: start: 2012

REACTIONS (21)
  - Incoherent [Unknown]
  - Stress [Unknown]
  - Asthenia [Recovering/Resolving]
  - Speech disorder [Recovering/Resolving]
  - Sedation [Unknown]
  - Sleep disorder [Recovering/Resolving]
  - Hostility [Recovering/Resolving]
  - Hypokinesia [Recovered/Resolved]
  - Feeling abnormal [Recovered/Resolved]
  - Fatigue [Recovered/Resolved]
  - Social problem [Recovered/Resolved]
  - Muscle twitching [Unknown]
  - Emotional distress [Recovering/Resolving]
  - Disturbance in attention [Recovered/Resolved]
  - Tic [Not Recovered/Not Resolved]
  - Anxiety [Unknown]
  - Withdrawal syndrome [Unknown]
  - Tardive dyskinesia [Unknown]
  - Weight decreased [Unknown]
  - Abasia [Recovering/Resolving]
  - Confusional state [Recovered/Resolved]
